FAERS Safety Report 19904856 (Version 1)
Quarter: 2021Q3

REPORT INFORMATION
  Report Type: Spontaneous
  Country: GB (occurrence: GB)
  Receive Date: 20210930
  Receipt Date: 20210930
  Transmission Date: 20211014
  Serious: Yes (Other)
  Sender: FDA-Public Use
  Company Number: GB-MYLANLABS-2021M1066965

PATIENT
  Age: 41 Year
  Sex: Female
  Weight: 54 kg

DRUGS (1)
  1. LEVOFLOXACIN. [Suspect]
     Active Substance: LEVOFLOXACIN
     Indication: PRODUCT USED FOR UNKNOWN INDICATION
     Dosage: 250 MILLIGRAM
     Dates: start: 20200814

REACTIONS (1)
  - Joint swelling [Recovered/Resolved]

NARRATIVE: CASE EVENT DATE: 20210923
